FAERS Safety Report 14503521 (Version 1)
Quarter: 2018Q1

REPORT INFORMATION
  Report Type: Spontaneous
  Country: US (occurrence: US)
  Receive Date: 20180208
  Receipt Date: 20180208
  Transmission Date: 20180509
  Serious: No
  Sender: FDA-Public Use
  Company Number: US-JNJFOC-20171133785

PATIENT
  Age: 80 Year
  Sex: Male
  Weight: 61.24 kg

DRUGS (1)
  1. TYLENOL REGULAR STRENGTH [Suspect]
     Active Substance: ACETAMINOPHEN
     Indication: SLEEP DISORDER THERAPY
     Dosage: ONE OR TWO TABLETS EVERY NIGHT
     Route: 048

REACTIONS (3)
  - Drug administration error [Unknown]
  - Therapeutic response unexpected [Unknown]
  - Product use in unapproved indication [Unknown]
